FAERS Safety Report 6756420-3 (Version None)
Quarter: 2010Q2

REPORT INFORMATION
  Report Type: 
  Country: None (occurrence: None)
  Receive Date: 20100604
  Receipt Date: 20100528
  Transmission Date: 20101027
  Serious: Yes (Hospitalization)
  Sender: FDA-Public Use
  Company Number: A0793332A

PATIENT
  Age: 63 Year
  Sex: Female

DRUGS (14)
  1. AVANDIA [Suspect]
     Dosage: 8MG PER DAY
     Route: 048
     Dates: start: 19990810, end: 20070523
  2. LISINOPRIL AND HYDROCHLOROTHIAZIDE [Concomitant]
  3. COREG [Concomitant]
  4. PRANDIN [Concomitant]
  5. LEVOTHYROXINE SODIUM [Concomitant]
  6. LIPITOR [Concomitant]
  7. NEXIUM [Concomitant]
  8. FUROSEMIDE [Concomitant]
  9. ATROVENT [Concomitant]
  10. CELEBREX [Concomitant]
  11. ZESTRIL [Concomitant]
  12. SYNTHROID [Concomitant]
  13. PRINZIDE [Concomitant]
  14. GLUCOTROL [Concomitant]

REACTIONS (3)
  - CARDIAC FAILURE [None]
  - CEREBROVASCULAR ACCIDENT [None]
  - OEDEMA PERIPHERAL [None]
